FAERS Safety Report 24105829 (Version 1)
Quarter: 2024Q3

REPORT INFORMATION
  Report Type: Spontaneous
  Country: US (occurrence: US)
  Receive Date: 20240717
  Receipt Date: 20240717
  Transmission Date: 20241016
  Serious: No
  Sender: AVERITAS
  Company Number: US-GRUNENTHAL-2023-270391

PATIENT
  Age: 89 Year
  Sex: Female

DRUGS (1)
  1. QUTENZA [Suspect]
     Active Substance: CAPSAICIN
     Indication: Diabetic neuropathy
     Dosage: 4 DOSAGE FORM, ONCE
     Route: 061
     Dates: start: 20230707, end: 20230707

REACTIONS (6)
  - Application site pain [Unknown]
  - Application site pain [Unknown]
  - Application site erythema [Unknown]
  - Application site rash [Unknown]
  - Application site reaction [Unknown]
  - Application site discolouration [Unknown]

NARRATIVE: CASE EVENT DATE: 20230707
